FAERS Safety Report 6656741-9 (Version None)
Quarter: 2010Q1

REPORT INFORMATION
  Report Type: 
  Country: None (occurrence: None)
  Receive Date: 20100324
  Receipt Date: 20100310
  Transmission Date: 20100710
  Serious: Yes (Hospitalization, Other)
  Sender: FDA-Public Use
  Company Number: 2010030028

PATIENT
  Age: 30 Year
  Sex: Male
  Weight: 86.2288 kg

DRUGS (12)
  1. SOMA [Suspect]
     Indication: MYALGIA
     Dosage: ORAL
     Route: 048
     Dates: end: 20090901
  2. CHANTIX [Suspect]
     Indication: SMOKING CESSATION THERAPY
     Dosage: 0.5 MG (0.5 MG, 1 IN 1 D), ORAL; 1 MG (0.5 MG, 2 IN 1 D0, ORAL; 2 MG (1 MG, 2 IN 1 D), ORAL
     Route: 048
     Dates: start: 20080601
  3. KLONOPIN [Suspect]
     Indication: CONVULSION
     Dosage: 2 MG (1 MG, 2 IN 1 D), ORAL
     Route: 048
  4. KEPPRA [Suspect]
     Indication: CONVULSION
     Dosage: (750 MG)
  5. VALIUM [Suspect]
     Dosage: 20 MG (10 MG, 2 IN 1 D)
     Route: 048
  6. LYRICA [Concomitant]
  7. DILANTIN [Concomitant]
  8. NEURONTIN [Concomitant]
  9. XANAX [Concomitant]
  10. HYDROCODONE (HYDROCODONE) [Concomitant]
  11. FIORICET W/CODEINE (BUTALBITAL, CAFFEINE, CODEINE PHOSPHATE, PARACETAM [Concomitant]
  12. AMITRIPTYLINE HYDROCHLORIDE [Concomitant]

REACTIONS (12)
  - BALANCE DISORDER [None]
  - BRAIN INJURY [None]
  - CONDITION AGGRAVATED [None]
  - CONVULSION [None]
  - DERMAL CYST [None]
  - DRY SKIN [None]
  - FEELING ABNORMAL [None]
  - INSOMNIA [None]
  - MEMORY IMPAIRMENT [None]
  - NIGHTMARE [None]
  - RIB FRACTURE [None]
  - WEIGHT INCREASED [None]
